FAERS Safety Report 10427929 (Version 1)
Quarter: 2014Q3

REPORT INFORMATION
  Report Type: Spontaneous
  Country: US (occurrence: None)
  Receive Date: 20140902
  Receipt Date: 20140902
  Transmission Date: 20150326
  Serious: No
  Sender: FDA-Public Use
  Company Number: None

PATIENT
  Age: 70 Year
  Sex: Male

DRUGS (28)
  1. COLLAGENASE OINTMENT [Concomitant]
     Active Substance: COLLAGENASE CLOSTRIDIUM HISTOLYTICUM
  2. DIGOXIN. [Concomitant]
     Active Substance: DIGOXIN
  3. KETOCONAZOLE. [Concomitant]
     Active Substance: KETOCONAZOLE
  4. SEVELAMER [Concomitant]
     Active Substance: SEVELAMER
  5. TRAZODONE [Concomitant]
     Active Substance: TRAZODONE HYDROCHLORIDE
  6. CHOLECALCIFEROL [Concomitant]
     Active Substance: CHOLECALCIFEROL
  7. DIPHENHYDRAMINE [Concomitant]
     Active Substance: DIPHENHYDRAMINE
  8. MULTIVITAMIN [Concomitant]
     Active Substance: VITAMINS
  9. ZINC OXIDE. [Concomitant]
     Active Substance: ZINC OXIDE
  10. ZINC SULFATE [Concomitant]
     Active Substance: ZINC SULFATE\ZINC SULFATE ANHYDROUS
  11. DOXYCYCLINE. [Concomitant]
     Active Substance: DOXYCYCLINE
  12. EPOETIN [Concomitant]
     Active Substance: ERYTHROPOIETIN
  13. HYDROMORPHONE [Concomitant]
     Active Substance: HYDROMORPHONE
  14. RANITIDINE [Concomitant]
     Active Substance: RANITIDINE\RANITIDINE HYDROCHLORIDE
  15. TRYPAAN-BALSAM PERU CASTOR OIL [Concomitant]
  16. WARFARIN [Suspect]
     Active Substance: WARFARIN
     Indication: ATRIAL FIBRILLATION
     Route: 048
     Dates: start: 20140610, end: 20140705
  17. CARVEDILOL. [Concomitant]
     Active Substance: CARVEDILOL
  18. METHYLPHENIDATE [Concomitant]
     Active Substance: METHYLPHENIDATE
  19. POTASSIUM CHLORIDE. [Concomitant]
     Active Substance: POTASSIUM CHLORIDE
  20. ASCORBIC ACID. [Concomitant]
     Active Substance: ASCORBIC ACID
  21. CHLORHEXADINE [Concomitant]
  22. METOCLOPRAMIDE. [Concomitant]
     Active Substance: METOCLOPRAMIDE
  23. QUETIAPINE [Concomitant]
     Active Substance: QUETIAPINE
  24. TRIAMCINOLONE ACETONIDE. [Concomitant]
     Active Substance: TRIAMCINOLONE ACETONIDE
  25. VANCOMYCIN [Concomitant]
     Active Substance: VANCOMYCIN
  26. COLCHICINE. [Concomitant]
     Active Substance: COLCHICINE
  27. GABAPENTIN. [Concomitant]
     Active Substance: GABAPENTIN
  28. LIDOCAINE. [Concomitant]
     Active Substance: LIDOCAINE

REACTIONS (2)
  - Haemoptysis [None]
  - International normalised ratio increased [None]

NARRATIVE: CASE EVENT DATE: 20140707
